FAERS Safety Report 8175238-0 (Version None)
Quarter: 2012Q1

REPORT INFORMATION
  Report Type: 
  Country: None (occurrence: None)
  Receive Date: 20120229
  Receipt Date: 20120222
  Transmission Date: 20120608
  Serious: Yes (Other)
  Sender: FDA-Public Use
  Company Number: JP-PFIZER INC-2012003814

PATIENT
  Age: 70 Year
  Sex: Male

DRUGS (6)
  1. AZULFIDINE [Suspect]
     Indication: RHEUMATOID ARTHRITIS
     Dosage: 250 MG, 2X/DAY
     Route: 048
     Dates: start: 20111115, end: 20111130
  2. AZULFIDINE [Suspect]
     Dosage: 500 MG, 2X/DAY
     Route: 048
     Dates: start: 20111201
  3. SENNOSIDE [Concomitant]
     Dosage: 0.2 G, 1X/DAY
     Route: 048
  4. LEVOTOMIN [Concomitant]
     Indication: KORSAKOFF'S SYNDROME
     Dosage: 0.1 G, 1X/DAY
     Route: 048
  5. TIAPRIDE HYDROCHLORIDE [Concomitant]
     Indication: KORSAKOFF'S SYNDROME
     Dosage: 1G, DAILY
     Route: 048
  6. HALOPERIDOL [Concomitant]
     Indication: KORSAKOFF'S SYNDROME
     Dosage: 0.1 G, 1X/DAY
     Route: 048

REACTIONS (1)
  - HYPERGLYCAEMIA [None]
